FAERS Safety Report 5158376-6 (Version None)
Quarter: 2006Q4

REPORT INFORMATION
  Report Type: 
  Country: None (occurrence: None)
  Receive Date: 20061116
  Receipt Date: 20061013
  Transmission Date: 20070319
  Serious: Yes (Hospitalization, Other)
  Sender: FDA-Public Use
  Company Number: PHBS2006JP14108

PATIENT
  Age: 36 Year
  Sex: Male

DRUGS (2)
  1. NEORAL [Suspect]
     Indication: NEPHROTIC SYNDROME
     Dosage: 200 MG/D, ORAL
     Route: 048
     Dates: start: 19980801
  2. PREDNISOLONE TAB [Suspect]
     Indication: NEPHROTIC SYNDROME
     Dosage: SEE IMAGE, ORAL
     Route: 048
     Dates: start: 19980801

REACTIONS (3)
  - DISEASE RECURRENCE [None]
  - NEPHROTIC SYNDROME [None]
  - RENAL VESSEL DISORDER [None]
